FAERS Safety Report 13644611 (Version 1)
Quarter: 2017Q2

REPORT INFORMATION
  Report Type: Spontaneous
  Country: US (occurrence: US)
  Receive Date: 20170612
  Receipt Date: 20170612
  Transmission Date: 20170830
  Serious: No
  Sender: FDA-Public Use
  Company Number: US-ROCHE-1441234

PATIENT
  Sex: Female

DRUGS (1)
  1. XELODA [Suspect]
     Active Substance: CAPECITABINE
     Indication: HEPATIC CANCER
     Dosage: 1000 MG QAM AND 1500MG QPM
     Route: 048
     Dates: start: 201308

REACTIONS (2)
  - Peripheral swelling [Unknown]
  - Weight increased [Unknown]
